FAERS Safety Report 5602868-X (Version None)
Quarter: 2008Q1

REPORT INFORMATION
  Report Type: 
  Country: None (occurrence: None)
  Receive Date: 20080125
  Receipt Date: 20080116
  Transmission Date: 20080703
  Serious: Yes (Hospitalization)
  Sender: FDA-Public Use
  Company Number: US-ABBOTT-08P-163-0433780-00

PATIENT
  Sex: Female
  Weight: 62.198 kg

DRUGS (3)
  1. SYNTHROID [Suspect]
     Indication: THYROIDECTOMY
     Route: 048
     Dates: start: 20030101, end: 20050801
  2. SYNTHROID [Suspect]
     Route: 048
     Dates: start: 20050801, end: 20071201
  3. ESOMEPRAZOLE MAGNESIUM [Concomitant]
     Indication: PHARYNGEAL ULCERATION
     Dates: start: 20030101

REACTIONS (11)
  - CALCIUM DEFICIENCY [None]
  - HAND FRACTURE [None]
  - HEADACHE [None]
  - HYPERTENSION [None]
  - ORAL PAIN [None]
  - OSTEOPOROSIS [None]
  - THYROTOXIC CRISIS [None]
  - TOOTH ABSCESS [None]
  - TOOTH DISORDER [None]
  - TOOTH FRACTURE [None]
  - WEIGHT INCREASED [None]
